FAERS Safety Report 7262465-X (Version None)
Quarter: 2011Q1

REPORT INFORMATION
  Report Type: 
  Country: None (occurrence: None)
  Receive Date: 20110130
  Receipt Date: 20101118
  Transmission Date: 20110831
  Serious: No
  Sender: FDA-Public Use
  Company Number: US-ABBOTT-10P-163-0686444-00

PATIENT
  Age: 35 Year
  Sex: Male

DRUGS (4)
  1. HUMIRA [Suspect]
     Indication: CROHN'S DISEASE
     Dates: start: 20101011
  2. NEXIUM [Concomitant]
     Indication: GASTROOESOPHAGEAL REFLUX DISEASE
  3. LORTAB [Concomitant]
     Indication: ABDOMINAL PAIN
     Dosage: AS NEEDED
  4. PHENERGAN [Concomitant]
     Indication: NAUSEA
     Dosage: 1 EVERY 4-6 HOURS

REACTIONS (3)
  - SINUS HEADACHE [None]
  - OROPHARYNGEAL PAIN [None]
  - RHINORRHOEA [None]
